FAERS Safety Report 5865972-7 (Version None)
Quarter: 2008Q3

REPORT INFORMATION
  Report Type: 
  Country: None (occurrence: None)
  Receive Date: 20080829
  Receipt Date: 20080820
  Transmission Date: 20090109
  Serious: Yes (Hospitalization, Other)
  Sender: FDA-Public Use
  Company Number: JP-PFIZER INC-2008050997

PATIENT
  Sex: Male
  Weight: 52 kg

DRUGS (5)
  1. VFEND [Suspect]
     Indication: MENINGITIS CRYPTOCOCCAL
     Dosage: DAILY DOSE:400MG
     Route: 042
     Dates: start: 20080411, end: 20080416
  2. VANCOMYCIN HYDROCHLORIDE [Concomitant]
     Indication: MENINGITIS BACTERIAL
     Route: 042
     Dates: start: 20080410, end: 20080414
  3. ROCEPHIN [Concomitant]
     Indication: MENINGITIS BACTERIAL
     Route: 042
     Dates: start: 20080410, end: 20080414
  4. ADALAT CC [Concomitant]
     Indication: HYPERTENSION
     Route: 048
     Dates: end: 20080416
  5. RENIVACE [Concomitant]
     Indication: HYPERTENSION
     Route: 048
     Dates: end: 20080416

REACTIONS (1)
  - ILEUS PARALYTIC [None]
